FAERS Safety Report 12305567 (Version 10)
Quarter: 2016Q4

REPORT INFORMATION
  Report Type: Report from Study
  Country: None (occurrence: BE)
  Receive Date: 20160426
  Receipt Date: 20161207
  Transmission Date: 20170207
  Serious: Yes (Hospitalization, Other)
  Sender: FDA-Public Use
  Company Number: BE-ABBVIE-15P-013-1456159-00

PATIENT
  Age: 68 Year
  Sex: Male

DRUGS (17)
  1. DUODOPA [Suspect]
     Active Substance: CARBIDOPA\LEVODOPA
     Dosage: AM=9ML; CD=2.7ML/H FOR 16HRS; ED=1ML
     Route: 050
     Dates: start: 20160216, end: 20160219
  2. DUODOPA [Suspect]
     Active Substance: CARBIDOPA\LEVODOPA
     Dosage: AM=9ML; CD=2.9ML/H FOR 16HRS; ED=1.5 ML
     Route: 050
     Dates: start: 20160219, end: 20160311
  3. DUODOPA [Suspect]
     Active Substance: CARBIDOPA\LEVODOPA
     Dosage: AM = 10 ML, CD = 2.8 ML/H DURING 16H, ED = 1.5 ML
     Route: 050
     Dates: start: 20150827, end: 20151130
  4. DUODOPA [Suspect]
     Active Substance: CARBIDOPA\LEVODOPA
     Dosage: AM=10ML; CD=2.9ML/H FOR 16HRS; ED=1.5 ML
     Route: 050
     Dates: start: 20160311, end: 20160517
  5. DUODOPA [Suspect]
     Active Substance: CARBIDOPA\LEVODOPA
     Dosage: DOSE CONTINUOUSLY MONITORED AND ADAPTED
     Route: 050
     Dates: start: 20120904, end: 20150824
  6. DUODOPA [Suspect]
     Active Substance: CARBIDOPA\LEVODOPA
     Dosage: AM=9ML; CD=2.7ML/H FOR 16HRS; ED=1.5ML
     Route: 050
     Dates: start: 20160215, end: 20160216
  7. DUODOPA [Suspect]
     Active Substance: CARBIDOPA\LEVODOPA
     Dosage: AM=9ML; CD=2.9ML/H FOR 16HRS; ED=1.5 ML
     Route: 050
     Dates: start: 20160517, end: 20160531
  8. DUODOPA [Suspect]
     Active Substance: CARBIDOPA\LEVODOPA
     Dosage: AM= 5 ML; CD= 2.5 ML/H DURING 16 HRS; ED= 1.5 ML
     Route: 050
     Dates: start: 20161129
  9. DUODOPA [Suspect]
     Active Substance: CARBIDOPA\LEVODOPA
     Indication: PARKINSON^S DISEASE
     Dosage: AM = 7 ML, CD = 2.9 ML/H DURING 16H, ED = 1 ML
     Route: 050
     Dates: start: 20120903, end: 20120904
  10. DUODOPA [Suspect]
     Active Substance: CARBIDOPA\LEVODOPA
     Dosage: AM = 10 ML, CD = 2.8 ML/H DURING 16H, ED = 2 ML
     Route: 050
     Dates: start: 20150824, end: 20150827
  11. DUODOPA [Suspect]
     Active Substance: CARBIDOPA\LEVODOPA
     Dosage: AM = 10 ML, CD = 2.7 ML/H DURING 16H, ED = 1.5 ML
     Route: 050
     Dates: start: 20151130, end: 20160215
  12. DUODOPA [Suspect]
     Active Substance: CARBIDOPA\LEVODOPA
     Dosage: AM=6ML; CD=2.7ML/H FOR 16HRS; ED=1.5 ML
     Route: 050
     Dates: start: 20160531, end: 20160627
  13. DUODOPA [Suspect]
     Active Substance: CARBIDOPA\LEVODOPA
     Dosage: AM=5ML,CD=2.7ML/HR DURING 16HRS,ED=1.5ML
     Route: 050
     Dates: start: 20160627, end: 20160831
  14. DUODOPA [Suspect]
     Active Substance: CARBIDOPA\LEVODOPA
     Dosage: AM DOSE=5ML; CD=2.3ML/H DURING 16HRS; ED=1.5ML
     Route: 050
     Dates: start: 20161005, end: 20161129
  15. COVERSYL [Concomitant]
     Active Substance: PERINDOPRIL
     Indication: PRODUCT USED FOR UNKNOWN INDICATION
     Route: 048
  16. DUODOPA [Suspect]
     Active Substance: CARBIDOPA\LEVODOPA
     Dosage: AM DOSE=5ML; CD=2.5ML/H DURING 16HRS, ED=1.5ML
     Route: 050
     Dates: start: 20160831, end: 20161005
  17. GLUCOPHAGE [Concomitant]
     Active Substance: METFORMIN HYDROCHLORIDE
     Indication: PRODUCT USED FOR UNKNOWN INDICATION
     Route: 048

REACTIONS (14)
  - Respiratory failure [Recovered/Resolved]
  - Pneumonia aspiration [Recovered/Resolved]
  - Freezing phenomenon [Unknown]
  - Diabetes mellitus [Unknown]
  - General physical health deterioration [Unknown]
  - Hypophagia [Unknown]
  - Hypoglycaemia [Recovered/Resolved]
  - Freezing phenomenon [Not Recovered/Not Resolved]
  - Dyskinesia [Not Recovered/Not Resolved]
  - Device occlusion [Unknown]
  - Septic shock [Recovered/Resolved]
  - On and off phenomenon [Unknown]
  - Speech disorder [Unknown]
  - Dystonia [Unknown]

NARRATIVE: CASE EVENT DATE: 20160416
